FAERS Safety Report 23417143 (Version 1)
Quarter: 2024Q1

REPORT INFORMATION
  Report Type: Spontaneous
  Country: CN (occurrence: CN)
  Receive Date: 20240118
  Receipt Date: 20240118
  Transmission Date: 20240410
  Serious: Yes (Other)
  Sender: FDA-Public Use
  Company Number: CN-009507513-2401CHN007112

PATIENT
  Age: 65 Year
  Sex: Male
  Weight: 63 kg

DRUGS (3)
  1. KEYTRUDA [Suspect]
     Active Substance: PEMBROLIZUMAB
     Indication: Lung adenocarcinoma stage IV
     Dosage: 200 MG, ONCE
     Route: 041
     Dates: start: 20230922, end: 20230922
  2. CARBOPLATIN [Concomitant]
     Active Substance: CARBOPLATIN
     Indication: Lung adenocarcinoma stage IV
     Dosage: 0.4 G, QD
     Route: 041
     Dates: start: 20230911, end: 20230912
  3. AO TIAN CHENG [Concomitant]
     Indication: Lung adenocarcinoma stage IV
     Dosage: 0.85 G, QD
     Route: 041
     Dates: start: 20230911, end: 20230912

REACTIONS (3)
  - Drug-induced liver injury [Recovering/Resolving]
  - Immune-mediated hepatic disorder [Recovering/Resolving]
  - Hepatic function abnormal [Recovering/Resolving]

NARRATIVE: CASE EVENT DATE: 20230926
